FAERS Safety Report 4801549-X (Version None)
Quarter: 2005Q4

REPORT INFORMATION
  Report Type: 
  Country: None (occurrence: None)
  Receive Date: 20051018
  Receipt Date: 20051007
  Transmission Date: 20060501
  Serious: Yes (Hospitalization)
  Sender: FDA-Public Use
  Company Number: 2005UW15241

PATIENT
  Sex: Female

DRUGS (4)
  1. SPIROCORT [Suspect]
     Indication: ASTHMA
     Route: 055
     Dates: start: 20000307
  2. BRICANYL [Suspect]
     Indication: ASTHMA
     Route: 055
  3. LOTRIAL [Suspect]
     Indication: HYPERTENSION
  4. BEROTEC [Concomitant]
     Indication: ASTHMA

REACTIONS (2)
  - ASTHMA [None]
  - CONDITION AGGRAVATED [None]
